FAERS Safety Report 4273202-5 (Version None)
Quarter: 2004Q1

REPORT INFORMATION
  Report Type: 
  Country: None (occurrence: None)
  Receive Date: 20040116
  Receipt Date: 20040105
  Transmission Date: 20041129
  Serious: Yes (Other)
  Sender: FDA-Public Use
  Company Number: US-BRISTOL-MYERS SQUIBB COMPANY-12473963

PATIENT
  Age: 48 Year
  Sex: Male
  Weight: 75 kg

DRUGS (6)
  1. EXCEDRIN (MIGRAINE) [Suspect]
     Indication: CLUSTER HEADACHE
     Dosage: DOSE: INITIATED TREATMENT WITH TWO TABLETS
     Route: 048
  2. EXCEDRIN (MIGRAINE) [Suspect]
     Indication: CLUSTER HEADACHE
     Dosage: DURATION: ^LONGER THAN 10 YEARS^
     Route: 048
  3. HYDROCHLOROTHIAZIDE [Concomitant]
  4. VITAMINS MULTIPLE [Concomitant]
  5. VITAMIN C [Concomitant]
  6. CALCIUM [Concomitant]

REACTIONS (4)
  - DRUG DEPENDENCE [None]
  - DRUG EFFECT DECREASED [None]
  - DYSPEPSIA [None]
  - MEDICATION ERROR [None]
